FAERS Safety Report 23222813 (Version 1)
Quarter: 2023Q4

REPORT INFORMATION
  Report Type: Report from Study
  Country: US (occurrence: US)
  Receive Date: 20231123
  Receipt Date: 20231123
  Transmission Date: 20240110
  Serious: Yes (Other)
  Sender: FDA-Public Use
  Company Number: US-BAXTER-2015BAX001716

PATIENT
  Sex: Female

DRUGS (2)
  1. HUMAN IMMUNOGLOBULIN G [Suspect]
     Active Substance: HUMAN IMMUNOGLOBULIN G
     Indication: Primary immunodeficiency syndrome
     Dosage: UNK
     Route: 065
  2. HUMAN IMMUNOGLOBULIN G [Suspect]
     Active Substance: HUMAN IMMUNOGLOBULIN G
     Indication: Primary immunodeficiency syndrome
     Dosage: UNK
     Route: 065

REACTIONS (15)
  - Localised infection [Recovered/Resolved]
  - Colonic abscess [Recovered/Resolved]
  - Chronic granulomatous disease [Not Recovered/Not Resolved]
  - Endocarditis [Not Recovered/Not Resolved]
  - Arteriovenous malformation [Not Recovered/Not Resolved]
  - Haemoptysis [Recovered/Resolved]
  - Ear haemorrhage [Not Recovered/Not Resolved]
  - Cellulitis [Recovered/Resolved]
  - Bone infarction [Not Recovered/Not Resolved]
  - Furuncle [Not Recovered/Not Resolved]
  - Fungal skin infection [Not Recovered/Not Resolved]
  - Epistaxis [Not Recovered/Not Resolved]
  - Skin laceration [Unknown]
  - Lung disorder [Unknown]
  - Insurance issue [Unknown]
